FAERS Safety Report 23661042 (Version 1)
Quarter: 2024Q1

REPORT INFORMATION
  Report Type: Spontaneous
  Country: CN (occurrence: CN)
  Receive Date: 20240322
  Receipt Date: 20240322
  Transmission Date: 20240410
  Serious: Yes (Other)
  Sender: FDA-Public Use
  Company Number: CN-BEIGENE-BGN-2024-004026

PATIENT

DRUGS (2)
  1. TISLELIZUMAB [Suspect]
     Active Substance: TISLELIZUMAB
     Indication: Lung adenocarcinoma
     Dosage: 200 MILLIGRAM
     Route: 041
     Dates: start: 20231025, end: 20240306
  2. BEVACIZUMAB [Concomitant]
     Active Substance: BEVACIZUMAB
     Indication: Lung adenocarcinoma
     Dosage: 500 MILLIGRAM
     Dates: start: 20231023, end: 20231026

REACTIONS (2)
  - Mouth ulceration [Recovering/Resolving]
  - Skin ulcer [Recovering/Resolving]

NARRATIVE: CASE EVENT DATE: 20240305
